FAERS Safety Report 9235866 (Version 1)
Quarter: 2013Q2

REPORT INFORMATION
  Report Type: Spontaneous
  Country: US (occurrence: None)
  Receive Date: 20130416
  Receipt Date: 20130416
  Transmission Date: 20140414
  Serious: Yes (Other)
  Sender: FDA-Public Use
  Company Number: None

PATIENT
  Age: 35 Year
  Sex: Female

DRUGS (3)
  1. TACROLIMUS [Suspect]
     Indication: IMMUNOSUPPRESSANT DRUG THERAPY
     Route: 048
  2. TACROLIMUS [Suspect]
     Indication: RENAL DISORDER
     Route: 048
  3. HECORIA [Suspect]
     Route: 048

REACTIONS (4)
  - Diarrhoea [None]
  - Nausea [None]
  - Tremor [None]
  - Abdominal discomfort [None]
